FAERS Safety Report 23210556 (Version 5)
Quarter: 2024Q1

REPORT INFORMATION
  Report Type: Spontaneous
  Country: US (occurrence: US)
  Receive Date: 20231121
  Receipt Date: 20240119
  Transmission Date: 20240409
  Serious: No
  Sender: FDA-Public Use
  Company Number: US-PFIZER INC-202300362218

PATIENT
  Age: 16 Year
  Sex: Male
  Weight: 51.6 kg

DRUGS (4)
  1. GENOTROPIN [Suspect]
     Active Substance: SOMATROPIN
     Indication: Growth hormone deficiency
     Dosage: 3.2 MG, 1X/DAY
     Route: 058
     Dates: start: 20230221
  2. ZOLOFT [Concomitant]
     Active Substance: SERTRALINE HYDROCHLORIDE
     Indication: Anxiety
     Dosage: 150 MG, 1X/DAY
  3. ZOLOFT [Concomitant]
     Active Substance: SERTRALINE HYDROCHLORIDE
     Indication: Depression
  4. METHYLPHENIDATE [Concomitant]
     Active Substance: METHYLPHENIDATE
     Dosage: 5 MG

REACTIONS (3)
  - Drug dose omission by device [Unknown]
  - Device difficult to use [Unknown]
  - Device mechanical issue [Unknown]
